FAERS Safety Report 8596770-1 (Version None)
Quarter: 2012Q3

REPORT INFORMATION
  Report Type: 
  Country: None (occurrence: None)
  Receive Date: 20120815
  Receipt Date: 20120806
  Transmission Date: 20120928
  Serious: No
  Sender: FDA-Public Use
  Company Number: US-ASTRAZENECA-2012SE24661

PATIENT
  Age: 47 Year
  Sex: Female

DRUGS (6)
  1. ZOMIG [Suspect]
     Route: 048
  2. NEXIUM [Suspect]
     Route: 048
  3. SEROQUEL XR [Suspect]
     Indication: SLEEP DISORDER
     Route: 048
  4. ZOMIG [Suspect]
     Route: 048
  5. ZOMIG [Suspect]
     Route: 048
  6. AMBIEN [Concomitant]

REACTIONS (9)
  - HYPOAESTHESIA [None]
  - CONTUSION [None]
  - VOMITING [None]
  - MIGRAINE [None]
  - DRUG DOSE OMISSION [None]
  - MALAISE [None]
  - INSOMNIA [None]
  - FALL [None]
  - POST-TRAUMATIC STRESS DISORDER [None]
